FAERS Safety Report 13675931 (Version 3)
Quarter: 2018Q1

REPORT INFORMATION
  Report Type: Report from Study
  Country: FI (occurrence: FI)
  Receive Date: 20170621
  Receipt Date: 20180131
  Transmission Date: 20180508
  Serious: Yes (Hospitalization, Other)
  Sender: FDA-Public Use
  Company Number: FI-MYLANLABS-2017M1036210

PATIENT
  Age: 56 Year
  Sex: Male

DRUGS (10)
  1. LEPONEX [Suspect]
     Active Substance: CLOZAPINE
     Dosage: 100 MG, UNK
     Dates: start: 20170604, end: 201706
  2. BURANA [Concomitant]
     Active Substance: IBUPROFEN
     Indication: PRODUCT USED FOR UNKNOWN INDICATION
  3. PANADOL [Concomitant]
     Active Substance: ACETAMINOPHEN
     Indication: PRODUCT USED FOR UNKNOWN INDICATION
  4. LEPONEX [Suspect]
     Active Substance: CLOZAPINE
     Dosage: 100 MG, QD
     Dates: start: 201706
  5. SIMVASTATIN. [Concomitant]
     Active Substance: SIMVASTATIN
     Indication: PRODUCT USED FOR UNKNOWN INDICATION
  6. LEPONEX [Suspect]
     Active Substance: CLOZAPINE
     Dosage: 100 MG, UNK
     Dates: end: 20170603
  7. LEPONEX [Suspect]
     Active Substance: CLOZAPINE
     Dosage: 400 MG, PM
     Dates: start: 20170604, end: 201706
  8. LEPONEX [Suspect]
     Active Substance: CLOZAPINE
     Dosage: UNK
     Dates: start: 201706
  9. LEPONEX [Suspect]
     Active Substance: CLOZAPINE
     Indication: SCHIZOPHRENIA
     Dosage: 300 MG, UNK
     Dates: end: 20170603
  10. LORAZEPAM. [Concomitant]
     Active Substance: LORAZEPAM
     Indication: PRODUCT USED FOR UNKNOWN INDICATION

REACTIONS (15)
  - Polydipsia [Unknown]
  - White blood cell count increased [Unknown]
  - Seizure [Recovered/Resolved]
  - Aggression [Unknown]
  - Body temperature increased [Unknown]
  - Hyponatraemia [Recovered/Resolved]
  - Haemoglobin decreased [Unknown]
  - Condition aggravated [Unknown]
  - Decreased appetite [Unknown]
  - Posterior reversible encephalopathy syndrome [Unknown]
  - Delusion [Unknown]
  - Malaise [Unknown]
  - C-reactive protein increased [Recovered/Resolved]
  - Pneumonia [Recovered/Resolved]
  - Living in residential institution [Unknown]

NARRATIVE: CASE EVENT DATE: 2017
